FAERS Safety Report 15005439 (Version 1)
Quarter: 2018Q2

REPORT INFORMATION
  Report Type: Spontaneous
  Country: US (occurrence: US)
  Receive Date: 20180521
  Receipt Date: 20180521
  Transmission Date: 20180711
  Serious: Yes (Hospitalization)
  Sender: FDA-Public Use
  Company Number: None

PATIENT
  Age: 72 Year
  Sex: Male
  Weight: 122.5 kg

DRUGS (14)
  1. COLCHICINE. [Concomitant]
     Active Substance: COLCHICINE
  2. DILTIAZEM. [Concomitant]
     Active Substance: DILTIAZEM
  3. PRINIVIL [Concomitant]
     Active Substance: LISINOPRIL
  4. K-DUR [Concomitant]
     Active Substance: POTASSIUM CHLORIDE
  5. WARFARIN [Suspect]
     Active Substance: WARFARIN
     Indication: ATRIAL FIBRILLATION
     Route: 048
  6. LASIX [Concomitant]
     Active Substance: FUROSEMIDE
  7. KEFLEX [Concomitant]
     Active Substance: CEPHALEXIN
  8. AMBIEN [Concomitant]
     Active Substance: ZOLPIDEM TARTRATE
  9. TYLENOL WITH CODEINE [Concomitant]
     Active Substance: ACETAMINOPHEN\CODEINE PHOSPHATE
  10. VOLTAREN IX [Concomitant]
  11. WARFARIN [Suspect]
     Active Substance: WARFARIN
     Indication: ATRIAL FIBRILLATION
     Route: 048
  12. METOLAZONE. [Concomitant]
     Active Substance: METOLAZONE
  13. ULORIC [Concomitant]
     Active Substance: FEBUXOSTAT
  14. TOPROL XL [Concomitant]
     Active Substance: METOPROLOL SUCCINATE

REACTIONS (3)
  - Subdural haematoma [None]
  - Fall [None]
  - Mental impairment [None]

NARRATIVE: CASE EVENT DATE: 20180209
